FAERS Safety Report 18042459 (Version 1)
Quarter: 2020Q3

REPORT INFORMATION
  Report Type: Report from Study
  Country: None (occurrence: DE)
  Receive Date: 20200720
  Receipt Date: 20200720
  Transmission Date: 20201103
  Serious: Yes (Hospitalization, Other)
  Sender: FDA-Public Use
  Company Number: DE-ABBVIE-20K-062-3488814-00

PATIENT
  Age: 55 Year
  Sex: Female

DRUGS (1)
  1. HUMIRA [Suspect]
     Active Substance: ADALIMUMAB
     Indication: COLITIS ULCERATIVE
     Route: 058
     Dates: start: 20140109, end: 201404

REACTIONS (7)
  - Pulmonary embolism [Recovered/Resolved]
  - COVID-19 [Not Recovered/Not Resolved]
  - Medical induction of coma [Unknown]
  - Drug intolerance [Recovered/Resolved]
  - Thrombosis [Unknown]
  - Blood loss anaemia [Unknown]
  - Arthropathy [Recovered/Resolved]

NARRATIVE: CASE EVENT DATE: 201403
